FAERS Safety Report 21382548 (Version 1)
Quarter: 2022Q3

REPORT INFORMATION
  Report Type: Other
  Country: MX (occurrence: None)
  Receive Date: 20220927
  Receipt Date: 20220927
  Transmission Date: 20221026
  Serious: Yes (Other)
  Sender: FDA-Public Use
  Company Number: MX-ROCHE-3186427

PATIENT
  Sex: Female

DRUGS (1)
  1. TOCILIZUMAB [Suspect]
     Active Substance: TOCILIZUMAB
     Indication: Rheumatoid arthritis
     Dosage: TOCILIZUMAB PREFILLED SYRINGES 162MG/0.9ML
     Route: 058
     Dates: start: 20150601, end: 202208

REACTIONS (1)
  - Thyroid cancer [Not Recovered/Not Resolved]
